FAERS Safety Report 4450522-2 (Version None)
Quarter: 2004Q3

REPORT INFORMATION
  Report Type: 
  Country: None (occurrence: None)
  Receive Date: 20040913
  Receipt Date: 20040510
  Transmission Date: 20050211
  Serious: No
  Sender: FDA-Public Use
  Company Number: 2004-BP-03179BP(1)

PATIENT
  Age: 81 Year
  Sex: Male
  Weight: 93.44 kg

DRUGS (5)
  1. SPIRIVA [Suspect]
     Indication: CHRONIC OBSTRUCTIVE AIRWAYS DISEASE
     Dosage: 18 MCG (18 MCG, 18 MCG ONCE DAILY), IH
     Route: 055
     Dates: start: 20040404, end: 20040406
  2. ALBUTEROL [Concomitant]
  3. ALLOPURINOL [Concomitant]
  4. FELODIPINE [Concomitant]
  5. SILDINAFIL (CITRATE (SILDENAFIL CITRATE) [Concomitant]

REACTIONS (3)
  - EYE PAIN [None]
  - HEADACHE [None]
  - VISION BLURRED [None]
